FAERS Safety Report 10248270 (Version 1)
Quarter: 2014Q2

REPORT INFORMATION
  Report Type: Spontaneous
  Country: FR (occurrence: FR)
  Receive Date: 20140620
  Receipt Date: 20140620
  Transmission Date: 20141212
  Serious: Yes (Other)
  Sender: FDA-Public Use
  Company Number: FR-UCBSA-2014002511

PATIENT
  Sex: Male

DRUGS (2)
  1. KEPPRA [Suspect]
     Dosage: 500 MG, 2X/DAY (BID)
  2. KEPPRA [Suspect]
     Dosage: UNK, 2X/DAY (BID), 500 MG + 250 MG

REACTIONS (1)
  - Drug dependence [Unknown]
